FAERS Safety Report 9897254 (Version 1)
Quarter: 2014Q1

REPORT INFORMATION
  Report Type: Spontaneous
  Country: PT (occurrence: PT)
  Receive Date: 20140214
  Receipt Date: 20140214
  Transmission Date: 20141002
  Serious: Yes (Other)
  Sender: FDA-Public Use
  Company Number: PT-AMGEN-PRTSP2014010705

PATIENT
  Age: 51 Year
  Sex: Male

DRUGS (10)
  1. ENBREL [Suspect]
     Indication: PSORIATIC ARTHROPATHY
     Dosage: 50 MG, WEEKLY
     Route: 058
     Dates: start: 20130722, end: 201312
  2. ENBREL [Suspect]
     Dosage: 50 MG, WEEKLY
     Route: 058
     Dates: start: 20140206
  3. LEDERTREXATE                       /00113801/ [Concomitant]
     Dosage: UNK, WEEKLY
  4. ARCOXIA [Concomitant]
     Dosage: 90 MG, AS NEEDED
  5. ROSILAN [Concomitant]
     Dosage: 7.5 MG (1/4 OF 30MG TABLET)
     Route: 048
  6. CODIOVAN [Concomitant]
     Dosage: 1X/DAY (AT NIGHT)
  7. CONCOR [Concomitant]
     Dosage: 2.5 MG, UNK
  8. OMEPRAZOL                          /00661201/ [Concomitant]
     Dosage: UNK UNK, UNK
  9. LORAZEPAM [Concomitant]
     Dosage: 2.5 MG, 1X/DAY (NIGHT)
  10. VENLAFAXINE [Concomitant]
     Dosage: UNK UNK, UNK

REACTIONS (4)
  - Influenza like illness [Recovered/Resolved]
  - Headache [Recovered/Resolved]
  - Fatigue [Recovered/Resolved]
  - Lung infection [Unknown]
